FAERS Safety Report 17440904 (Version 1)
Quarter: 2020Q1

REPORT INFORMATION
  Report Type: Spontaneous
  Country: US (occurrence: US)
  Receive Date: 20200220
  Receipt Date: 20200220
  Transmission Date: 20200409
  Serious: Yes (Death, Hospitalization, Other)
  Sender: FDA-Public Use
  Company Number: US-MEITHEAL PHARMACEUTICALS-2020MHL00005

PATIENT
  Age: 15 Month
  Sex: Female
  Weight: 9.8 kg

DRUGS (1)
  1. BLEOMYCIN [Suspect]
     Active Substance: BLEOMYCIN SULFATE
     Indication: VENOLYMPHATIC MALFORMATION
     Dosage: 7 U, ONCE (1 MG/ML)
     Route: 026

REACTIONS (6)
  - Pneumonitis [Fatal]
  - Respiratory distress [Unknown]
  - Pneumothorax [Fatal]
  - Pulmonary haemorrhage [Unknown]
  - Pneumomediastinum [Unknown]
  - Respiratory failure [Fatal]
